FAERS Safety Report 9945647 (Version 1)
Quarter: 2014Q1

REPORT INFORMATION
  Report Type: Spontaneous
  Country: US (occurrence: US)
  Receive Date: 20140303
  Receipt Date: 20140303
  Transmission Date: 20141002
  Serious: No
  Sender: FDA-Public Use
  Company Number: US-AMGEN-USASP2013069132

PATIENT
  Age: 61 Year
  Sex: Female
  Weight: 77.1 kg

DRUGS (6)
  1. ENBREL [Suspect]
     Indication: PRODUCT USED FOR UNKNOWN INDICATION
     Dosage: 50 MG/ML, ONCE A WEEK
     Route: 058
  2. METHOTREXATE [Concomitant]
     Dosage: UNK
  3. FOLIC ACID [Concomitant]
     Dosage: UNK
  4. ACYCLOVIR                          /00587301/ [Concomitant]
     Dosage: 200 MG, UNK
  5. NAPROXEN [Concomitant]
     Dosage: UNK
  6. CALCIUM 500+D [Concomitant]
     Dosage: UNK

REACTIONS (2)
  - Localised infection [Unknown]
  - Injection site pain [Unknown]
